FAERS Safety Report 9868309 (Version 1)
Quarter: 2014Q1

REPORT INFORMATION
  Report Type: Spontaneous
  Country: FR (occurrence: FR)
  Receive Date: 20140204
  Receipt Date: 20140204
  Transmission Date: 20141002
  Serious: Yes (Hospitalization)
  Sender: FDA-Public Use
  Company Number: FR-ASTRAZENECA-2014SE06266

PATIENT
  Age: 66 Year
  Sex: Male

DRUGS (7)
  1. INEXIUM [Suspect]
     Dosage: UNKNOWN DOSE, DAILY
     Route: 048
     Dates: start: 2000, end: 20131210
  2. PROCORALAN [Concomitant]
  3. AMLOR [Concomitant]
  4. COVERSYL [Concomitant]
  5. KARDEGIC [Concomitant]
  6. ELISOR [Concomitant]
  7. BISOPROLOL [Concomitant]

REACTIONS (2)
  - Hypocalcaemia [Unknown]
  - Hypomagnesaemia [Unknown]
